FAERS Safety Report 8470364-0 (Version None)
Quarter: 2012Q2

REPORT INFORMATION
  Report Type: 
  Country: None (occurrence: None)
  Receive Date: 20120323
  Receipt Date: 20111010
  Transmission Date: 20120825
  Serious: Yes (Hospitalization)
  Sender: FDA-Public Use
  Company Number: 163-21880-11101243

PATIENT
  Age: 63 Year
  Sex: Male
  Weight: 90.7194 kg

DRUGS (6)
  1. LENALIDOMIDE [Suspect]
     Indication: LIGHT CHAIN DISEASE
     Dosage: 10 MG, QD, PO
     Route: 048
     Dates: start: 20080311
  2. RENVELA [Concomitant]
  3. WARFARIN SODIUM [Concomitant]
  4. ASPIRIN [Concomitant]
  5. LIPITOR [Concomitant]
  6. DEXAMETHASONE [Concomitant]

REACTIONS (2)
  - LOCALISED INFECTION [None]
  - THROMBOSIS [None]
